FAERS Safety Report 21450557 (Version 1)
Quarter: 2022Q4

REPORT INFORMATION
  Report Type: Spontaneous
  Country: US (occurrence: None)
  Receive Date: 20221012
  Receipt Date: 20221012
  Transmission Date: 20230112
  Serious: No
  Sender: FDA-Public Use
  Company Number: None

PATIENT
  Age: 75 Year
  Sex: Male
  Weight: 100.97 kg

DRUGS (7)
  1. CAPECITABINE [Suspect]
     Active Substance: CAPECITABINE
     Indication: Oesophageal carcinoma
     Dosage: FREQUENCY : TWICE A DAY;?
     Route: 048
     Dates: start: 202209
  2. ATENOLOL [Concomitant]
     Active Substance: ATENOLOL
  3. HERCEPTIN [Concomitant]
  4. HYDROCHLOROTHIAZIDE [Concomitant]
  5. KEYTRUDA [Concomitant]
  6. OXALIPLATIN [Concomitant]
  7. ZOFRAN [Concomitant]

REACTIONS (1)
  - Flatulence [None]
